FAERS Safety Report 23362173 (Version 5)
Quarter: 2024Q4

REPORT INFORMATION
  Report Type: Report from Study
  Country: JP (occurrence: JP)
  Receive Date: 20240103
  Receipt Date: 20241226
  Transmission Date: 20250115
  Serious: Yes (Other)
  Sender: ROCHE
  Company Number: JP-CHUGAI-2023046677

PATIENT
  Age: 63 Year
  Sex: Female
  Weight: 58.7 kg

DRUGS (2)
  1. TECENTRIQ [Suspect]
     Active Substance: ATEZOLIZUMAB
     Indication: Triple negative breast cancer
     Dosage: 840 MILLIGRAM
     Route: 065
     Dates: start: 20230621
  2. PACLITAXEL [Suspect]
     Active Substance: PACLITAXEL
     Indication: Triple negative breast cancer
     Dosage: 100 MILLIGRAM/SQ. METER
     Route: 065
     Dates: start: 20230621, end: 20240402

REACTIONS (4)
  - Neutropenia [Recovered/Resolved]
  - Alopecia [Not Recovered/Not Resolved]
  - Neuropathy peripheral [Recovering/Resolving]
  - Hypersensitivity [Recovered/Resolved]

NARRATIVE: CASE EVENT DATE: 20230627
